FAERS Safety Report 5355328-8 (Version None)
Quarter: 2007Q2

REPORT INFORMATION
  Report Type: 
  Country: None (occurrence: None)
  Receive Date: 20070601
  Receipt Date: 20070416
  Transmission Date: 20071010
  Serious: No
  Sender: FDA-Public Use
  Company Number: S07-USA-01633-01

PATIENT
  Age: 42 Year
  Sex: Male

DRUGS (3)
  1. CAMPRAL [Suspect]
     Indication: ALCOHOLISM
     Dosage: 666 MG TID PO
     Route: 048
     Dates: start: 20070329, end: 20070413
  2. CAMPRAL [Suspect]
     Indication: PROPHYLAXIS
     Dosage: 666 MG TID PO
     Route: 048
     Dates: start: 20070329, end: 20070413
  3. ZYPREXA [Suspect]
     Indication: BIPOLAR DISORDER
     Dosage: 20 MG QD

REACTIONS (3)
  - DRUG INTERACTION [None]
  - FEELING OF RELAXATION [None]
  - SOMNOLENCE [None]
